FAERS Safety Report 21469429 (Version 2)
Quarter: 2023Q1

REPORT INFORMATION
  Report Type: Report from Study
  Country: US (occurrence: US)
  Receive Date: 20221018
  Receipt Date: 20230130
  Transmission Date: 20230417
  Serious: No
  Sender: FDA-Public Use
  Company Number: US-ABBVIE-4131809

PATIENT
  Sex: Female

DRUGS (2)
  1. RINVOQ [Suspect]
     Active Substance: UPADACITINIB
     Indication: Rheumatoid arthritis
     Dosage: FORM STRENGTH: 15 MG
     Route: 048
     Dates: start: 20220215
  2. RINVOQ [Suspect]
     Active Substance: UPADACITINIB
     Indication: Rheumatoid arthritis
     Route: 048

REACTIONS (10)
  - Fall [Unknown]
  - Contusion [Recovered/Resolved]
  - Fall [Recovered/Resolved]
  - Oropharyngeal pain [Unknown]
  - Asthenia [Unknown]
  - Ear pain [Unknown]
  - Cough [Unknown]
  - Dizziness [Recovering/Resolving]
  - Influenza [Recovered/Resolved]
  - Dizziness [Unknown]

NARRATIVE: CASE EVENT DATE: 20220101
